FAERS Safety Report 12578365 (Version 1)
Quarter: 2016Q3

REPORT INFORMATION
  Report Type: Spontaneous
  Country: US (occurrence: None)
  Receive Date: 20160720
  Receipt Date: 20160720
  Transmission Date: 20161109
  Serious: Yes (Hospitalization, Other)
  Sender: FDA-Public Use
  Company Number: None

PATIENT
  Age: 28 Year
  Sex: Female
  Weight: 79.38 kg

DRUGS (3)
  1. PEPPERMINT OIL [Concomitant]
     Active Substance: PEPPERMINT OIL
  2. MONISTAT 1 COMBINATION PACK TRIPLE ACTION [Suspect]
     Active Substance: MICONAZOLE NITRATE
     Indication: VULVOVAGINAL MYCOTIC INFECTION
     Dosage: 1 OVULE INSERT AT BEDTIME VAGINAL
     Route: 067
     Dates: start: 20160718, end: 20160718
  3. PANTOPRAZOLE [Concomitant]
     Active Substance: PANTOPRAZOLE SODIUM

REACTIONS (5)
  - Product label issue [None]
  - Vulvovaginal pruritus [None]
  - Vulvovaginal pain [None]
  - Impaired work ability [None]
  - Vulvovaginal swelling [None]

NARRATIVE: CASE EVENT DATE: 20160719
